FAERS Safety Report 12633816 (Version 1)
Quarter: 2016Q3

REPORT INFORMATION
  Report Type: Spontaneous
  Country: US (occurrence: US)
  Receive Date: 20160809
  Receipt Date: 20160809
  Transmission Date: 20161109
  Serious: Yes (Other)
  Sender: FDA-Public Use
  Company Number: US-JNJCP-30000347829

PATIENT
  Sex: Female
  Weight: 73 kg

DRUGS (1)
  1. NEUTROGENA ULTRA SHEER DRY TOUCH SUNSCREEN BROAD SPECTRUM SPF55 [Suspect]
     Active Substance: AVOBENZONE\HOMOSALATE\OCTISALATE\OCTOCRYLENE\OXYBENZONE
     Indication: PROPHYLAXIS
     Dosage: QUARTER SIZE AMOUNT, TWICE DAILY
     Route: 061

REACTIONS (3)
  - Precancerous skin lesion [Not Recovered/Not Resolved]
  - Sunburn [Not Recovered/Not Resolved]
  - Drug ineffective [Unknown]
